FAERS Safety Report 8880070 (Version 1)
Quarter: 2012Q4

REPORT INFORMATION
  Report Type: 
  Country: US (occurrence: US)
  Receive Date: 20121031
  Receipt Date: 20121031
  Transmission Date: 20130627
  Serious: No
  Sender: FDA-Public Use
  Company Number: US-VERTEX PHARMACEUTICAL INC.-AE-2012-010884

PATIENT
  Sex: Male
  Weight: 76 kg

DRUGS (1)
  1. VX-770 [Suspect]
     Indication: CYSTIC FIBROSIS
     Dosage: 150 mg, qd
     Dates: start: 20120403

REACTIONS (3)
  - Infection [Not Recovered/Not Resolved]
  - Drug dose omission [Recovered/Resolved]
  - Dizziness [Not Recovered/Not Resolved]
